FAERS Safety Report 8789523 (Version 1)
Quarter: 2012Q4

REPORT INFORMATION
  Report Type: Spontaneous
  Country: ES (occurrence: None)
  Receive Date: 20120905
  Receipt Date: 20120905
  Transmission Date: 20130627
  Serious: Yes (Other)
  Sender: FDA-Public Use
  Company Number: FK201202556

PATIENT
  Age: 54 Year
  Sex: Female

DRUGS (4)
  1. CYTARABINE [Suspect]
  2. CYTARABINE [Suspect]
     Dosage: 3 other, 3g/m2
     Route: 050
  3. IDARUBICIN HYDROCHLORIDE [Suspect]
  4. DAUNORUBICIN [Suspect]

REACTIONS (9)
  - Bone marrow failure [None]
  - Febrile neutropenia [None]
  - Enterococcal infection [None]
  - Swelling face [None]
  - Eyelid oedema [None]
  - Facial pain [None]
  - Candidiasis [None]
  - Osteomyelitis [None]
  - Oroantral fistula [None]
